FAERS Safety Report 7539480-1 (Version None)
Quarter: 2011Q2

REPORT INFORMATION
  Report Type: 
  Country: None (occurrence: None)
  Receive Date: 20110610
  Receipt Date: 20110526
  Transmission Date: 20111010
  Serious: Yes (Other)
  Sender: FDA-Public Use
  Company Number: IT-JNJFOC-20110511819

PATIENT

DRUGS (1)
  1. INFLIXIMAB, RECOMBINANT [Suspect]
     Indication: ANKYLOSING SPONDYLITIS
     Dosage: MG/KG AT WEEK 0, 2, 6 AND EVERY 6 WEEKS FOR A PERIOD OF 102 WEEKS
     Route: 042

REACTIONS (2)
  - INFUSION RELATED REACTION [None]
  - UVEITIS [None]
